FAERS Safety Report 12738167 (Version 1)
Quarter: 2016Q3

REPORT INFORMATION
  Report Type: Report from Study
  Country: IT (occurrence: US)
  Receive Date: 20160913
  Receipt Date: 20160913
  Transmission Date: 20161109
  Serious: Yes (Other)
  Sender: FDA-Public Use
  Company Number: IT-SIGMA-TAU US-2015STPI000609

PATIENT
  Sex: Male

DRUGS (9)
  1. EPADEL-S [Concomitant]
     Active Substance: ICOSAPENT ETHYL
  2. SPIRONOLACTONE. [Concomitant]
     Active Substance: SPIRONOLACTONE
  3. PERSANTINE [Concomitant]
     Active Substance: DIPYRIDAMOLE
  4. LEVOCARNITINE. [Suspect]
     Active Substance: LEVOCARNITINE
     Indication: CARNITINE DEFICIENCY
     Dosage: 1000 MG, UNK
     Route: 010
     Dates: start: 20150529, end: 20150831
  5. NOVORAPID [Concomitant]
     Active Substance: INSULIN ASPART
  6. RIONA [Concomitant]
     Active Substance: FERRIC CITRATE ANHYDROUS
  7. LANTUS [Concomitant]
     Active Substance: INSULIN GLARGINE
  8. FUROSEMIDE. [Concomitant]
     Active Substance: FUROSEMIDE
  9. DIART [Concomitant]
     Active Substance: AZOSEMIDE

REACTIONS (1)
  - Renal transplant [Unknown]
